FAERS Safety Report 8159668 (Version 1)
Quarter: 2020Q3

REPORT INFORMATION
  Report Type: Report from Study
  Country: PL (occurrence: PL)
  Receive Date: 20110928
  Receipt Date: 20110928
  Transmission Date: 20201104
  Serious: Yes (Hospitalization)
  Sender: FDA-Public Use
  Company Number: PL-JNJFOC-20101005971

PATIENT
  Age: 58 Year
  Sex: Female
  Weight: 88.7 kg

DRUGS (8)
  1. RIVAROXABAN [Suspect]
     Active Substance: RIVAROXABAN
     Route: 048
     Dates: start: 20090703, end: 20100826
  2. ASPIRIN. [Concomitant]
     Active Substance: ASPIRIN
     Dates: end: 20090630
  3. BISOPROLOL FUMARATE. [Concomitant]
     Active Substance: BISOPROLOL FUMARATE
     Indication: ILL-DEFINED DISORDER
  4. CLOPIDOGREL [Concomitant]
     Active Substance: CLOPIDOGREL BISULFATE
     Indication: ACUTE CORONARY SYNDROME
     Dates: end: 20090630
  5. RIVAROXABAN [Suspect]
     Active Substance: RIVAROXABAN
     Indication: ACUTE CORONARY SYNDROME
     Route: 048
     Dates: start: 20090702, end: 20090702
  6. ASPIRIN. [Concomitant]
     Active Substance: ASPIRIN
     Indication: ACUTE CORONARY SYNDROME
  7. SIMVASTATIN. [Concomitant]
     Active Substance: SIMVASTATIN
     Indication: ILL-DEFINED DISORDER
  8. VALSARTAN. [Concomitant]
     Active Substance: VALSARTAN
     Indication: ILL-DEFINED DISORDER

REACTIONS (1)
  - Nodular vasculitis [Recovered/Resolved]

NARRATIVE: CASE EVENT DATE: 20100901
